FAERS Safety Report 23574409 (Version 4)
Quarter: 2024Q1

REPORT INFORMATION
  Report Type: Other
  Country: CA (occurrence: None)
  Receive Date: 20240228
  Receipt Date: 20240320
  Transmission Date: 20240409
  Serious: No
  Sender: FDA-Public Use
  Company Number: CA-ROCHE-2716471

PATIENT
  Age: 58 Year
  Sex: Female

DRUGS (2)
  1. OCREVUS [Suspect]
     Active Substance: OCRELIZUMAB
     Indication: Primary progressive multiple sclerosis
     Dosage: 300 MG AT DAY 0 AND 14, THEN 600 MG EVERY 6 MONTH
     Route: 042
     Dates: start: 20190312
  2. ATASOL (CANADA) [Concomitant]

REACTIONS (8)
  - Nasopharyngitis [Unknown]
  - Oropharyngeal pain [Recovered/Resolved]
  - Productive cough [Recovered/Resolved]
  - Rhinorrhoea [Recovered/Resolved]
  - Ear infection [Recovering/Resolving]
  - Sinusitis [Unknown]
  - COVID-19 [Unknown]
  - Influenza [Unknown]

NARRATIVE: CASE EVENT DATE: 20201115
